FAERS Safety Report 18186800 (Version 1)
Quarter: 2020Q3

REPORT INFORMATION
  Report Type: Spontaneous
  Country: US (occurrence: US)
  Receive Date: 20200824
  Receipt Date: 20200824
  Transmission Date: 20201103
  Serious: Yes (Other)
  Sender: FDA-Public Use
  Company Number: US-PFIZER INC-2020324428

PATIENT
  Sex: Female

DRUGS (1)
  1. DESVENLAFAXINE SUCCINATE MONOHYDRATE [Suspect]
     Active Substance: DESVENLAFAXINE SUCCINATE
     Dosage: 100 MG ( TAKEN 4 TABLETS TOTAL)

REACTIONS (8)
  - Hyperhidrosis [Unknown]
  - Illness [Unknown]
  - Migraine [Unknown]
  - Food allergy [Unknown]
  - Syncope [Unknown]
  - Pharyngeal ulceration [Unknown]
  - Diarrhoea [Unknown]
  - Abdominal pain upper [Unknown]
